FAERS Safety Report 12934646 (Version 3)
Quarter: 2019Q2

REPORT INFORMATION
  Report Type: Spontaneous
  Country: GR (occurrence: GR)
  Receive Date: 20161111
  Receipt Date: 20190518
  Transmission Date: 20190711
  Serious: Yes (Other)
  Sender: FDA-Public Use
  Company Number: PHHY2016GR152522

PATIENT
  Age: 46 Year
  Sex: Female

DRUGS (5)
  1. EVEROLIMUS. [Suspect]
     Active Substance: EVEROLIMUS
     Indication: BREAST CANCER
  2. EVEROLIMUS. [Suspect]
     Active Substance: EVEROLIMUS
     Indication: PROPHYLAXIS AGAINST TRANSPLANT REJECTION
  3. ZOLEDRONATE [Suspect]
     Active Substance: ZOLEDRONIC ACID
     Indication: BREAST CANCER RECURRENT
     Dosage: 22 DF, (22 INJECTIONS)
     Route: 065
     Dates: start: 201106, end: 201303
  4. EVEROLIMUS. [Suspect]
     Active Substance: EVEROLIMUS
     Indication: BREAST CANCER RECURRENT
     Dosage: UNK
     Route: 065
     Dates: start: 201201, end: 201304
  5. EXEMESTANE. [Suspect]
     Active Substance: EXEMESTANE
     Indication: BREAST CANCER RECURRENT
     Dosage: UNK
     Route: 065
     Dates: start: 201201, end: 201403

REACTIONS (13)
  - Purulence [Recovered/Resolved]
  - Bone pain [Not Recovered/Not Resolved]
  - Loose tooth [Recovered/Resolved]
  - Osteonecrosis [Unknown]
  - Fistula [Recovered/Resolved]
  - Bone swelling [Unknown]
  - Osteonecrosis of jaw [Recovered/Resolved]
  - Periodontal disease [Recovering/Resolving]
  - Swelling [Recovered/Resolved]
  - Pain [Recovered/Resolved]
  - Gingival pain [Recovered/Resolved]
  - Exposed bone in jaw [Recovered/Resolved]
  - Ligament disorder [Unknown]

NARRATIVE: CASE EVENT DATE: 20130131
